FAERS Safety Report 9803072 (Version 1)
Quarter: 2014Q1

REPORT INFORMATION
  Report Type: Spontaneous
  Country: US (occurrence: None)
  Receive Date: 20140106
  Receipt Date: 20140106
  Transmission Date: 20141002
  Serious: Yes (Hospitalization)
  Sender: FDA-Public Use
  Company Number: None

PATIENT
  Age: 64 Year
  Sex: Female

DRUGS (1)
  1. BOTOX [Suspect]
     Indication: MIGRAINE
     Route: 030
     Dates: start: 20130524, end: 201311

REACTIONS (4)
  - Musculoskeletal stiffness [None]
  - Obstructive airways disorder [None]
  - Jaw disorder [None]
  - VIIth nerve paralysis [None]
